FAERS Safety Report 5010513-X (Version None)
Quarter: 2006Q2

REPORT INFORMATION
  Report Type: 
  Country: None (occurrence: None)
  Receive Date: 20060525
  Receipt Date: 20051118
  Transmission Date: 20061013
  Serious: No
  Sender: FDA-Public Use
  Company Number: US-GLAXOSMITHKLINE-A0582894A

PATIENT
  Age: 86 Year
  Sex: Male

DRUGS (4)
  1. BACTROBAN [Suspect]
     Dosage: 1APP TWICE PER DAY
     Route: 045
     Dates: start: 20051111
  2. MICARDIS [Concomitant]
  3. PRILOSEC [Concomitant]
  4. SULFA [Concomitant]

REACTIONS (1)
  - OFF LABEL USE [None]
